FAERS Safety Report 17393260 (Version 1)
Quarter: 2020Q1

REPORT INFORMATION
  Report Type: Spontaneous
  Country: US (occurrence: US)
  Receive Date: 20200207
  Receipt Date: 20200207
  Transmission Date: 20200409
  Serious: No
  Sender: FDA-Public Use
  Company Number: US-VALIDUS PHARMACEUTICALS LLC-US-2019VAL000233

PATIENT
  Sex: Female

DRUGS (1)
  1. FUROSEMIDE. [Suspect]
     Active Substance: FUROSEMIDE
     Indication: CARDIAC FAILURE CONGESTIVE
     Dosage: 50 MG, BID
     Route: 048

REACTIONS (2)
  - Drug ineffective [Unknown]
  - Medication error [Unknown]
